FAERS Safety Report 5280320-1 (Version None)
Quarter: 2007Q1

REPORT INFORMATION
  Report Type: 
  Country: None (occurrence: None)
  Receive Date: 20070329
  Receipt Date: 20070323
  Transmission Date: 20070707
  Serious: Yes (Hospitalization)
  Sender: FDA-Public Use
  Company Number: DE-GLAXOSMITHKLINE-D0050037A

PATIENT
  Age: 36 Year
  Sex: Female

DRUGS (5)
  1. COMBIVIR [Suspect]
     Indication: SYSTEMIC ANTIVIRAL TREATMENT
     Dosage: 1TAB TWICE PER DAY
     Route: 048
     Dates: start: 20060316
  2. TELZIR [Suspect]
     Indication: SYSTEMIC ANTIVIRAL TREATMENT
     Dosage: 700MG TWICE PER DAY
     Route: 048
     Dates: start: 20060517
  3. KALETRA [Suspect]
     Indication: SYSTEMIC ANTIVIRAL TREATMENT
     Dosage: 3CAP TWICE PER DAY
     Route: 048
     Dates: start: 20060321, end: 20060517
  4. NORVIR [Suspect]
     Indication: SYSTEMIC ANTIVIRAL TREATMENT
     Dosage: 100MG TWICE PER DAY
     Route: 048
     Dates: start: 20060517
  5. COTRIM [Concomitant]
     Dosage: 1TAB PER DAY
     Route: 048
     Dates: start: 20060316, end: 20060501

REACTIONS (7)
  - ABDOMINAL PAIN [None]
  - CAESAREAN SECTION [None]
  - DIARRHOEA [None]
  - DIARRHOEA HAEMORRHAGIC [None]
  - NORMAL DELIVERY [None]
  - PREGNANCY [None]
  - PSEUDOMEMBRANOUS COLITIS [None]
